FAERS Safety Report 4911689-2 (Version None)
Quarter: 2006Q1

REPORT INFORMATION
  Report Type: 
  Country: None (occurrence: None)
  Receive Date: 20060213
  Receipt Date: 20060202
  Transmission Date: 20060701
  Serious: Yes (Other)
  Sender: FDA-Public Use
  Company Number: 2006016765

PATIENT
  Sex: Female

DRUGS (3)
  1. ZYRTEC [Suspect]
     Indication: BLOOD IMMUNOGLOBULIN E INCREASED
     Dosage: SEE IMAGE
     Dates: start: 20000101, end: 20050101
  2. ZYRTEC [Suspect]
     Indication: BLOOD IMMUNOGLOBULIN E INCREASED
     Dosage: SEE IMAGE
     Dates: start: 20050101, end: 20050101
  3. ZYRTEC [Suspect]
     Indication: BLOOD IMMUNOGLOBULIN E INCREASED
     Dosage: SEE IMAGE
     Dates: start: 20051001

REACTIONS (6)
  - CONDITION AGGRAVATED [None]
  - FOOD ALLERGY [None]
  - HYPER IGE SYNDROME [None]
  - MILK ALLERGY [None]
  - STAPHYLOCOCCAL INFECTION [None]
  - THERAPEUTIC RESPONSE DECREASED [None]
